FAERS Safety Report 5903242-9 (Version None)
Quarter: 2008Q3

REPORT INFORMATION
  Report Type: 
  Country: None (occurrence: None)
  Receive Date: 20080926
  Receipt Date: 20080912
  Transmission Date: 20090109
  Serious: Yes (Hospitalization)
  Sender: FDA-Public Use
  Company Number: 238700J08USA

PATIENT
  Age: 50 Year
  Sex: Female
  Weight: 56.6996 kg

DRUGS (4)
  1. REBIF [Suspect]
     Indication: MULTIPLE SCLEROSIS
     Dosage: 44 MCG,3 IN 1 WEEKS, SUBCUTANEOUS
     Route: 058
     Dates: start: 20030101, end: 20080806
  2. NEURONTIN [Concomitant]
  3. BACLOFEN [Concomitant]
  4. UNSPECIFIED BLOOD PRESSURE MEDICATION (OTHER ANTIHYPERTENSIVES) [Concomitant]

REACTIONS (2)
  - FALL [None]
  - FEMUR FRACTURE [None]
